FAERS Safety Report 13065688 (Version 2)
Quarter: 2016Q4

REPORT INFORMATION
  Report Type: Spontaneous
  Country: IT (occurrence: IT)
  Receive Date: 20161227
  Receipt Date: 20161228
  Transmission Date: 20170207
  Serious: Yes (Other)
  Sender: FDA-Public Use
  Company Number: IT-UCBSA-2016049173

PATIENT
  Age: 0 Year
  Sex: Male

DRUGS (1)
  1. KEPPRA [Suspect]
     Active Substance: LEVETIRACETAM
     Indication: EPILEPSY
     Dosage: DAILY DOSE 1000 MG
     Route: 064
     Dates: start: 20160128, end: 20160313

REACTIONS (4)
  - Foetal exposure during pregnancy [Unknown]
  - Hypotonia [Not Recovered/Not Resolved]
  - Stenosis [Not Recovered/Not Resolved]
  - Cyanosis [Not Recovered/Not Resolved]

NARRATIVE: CASE EVENT DATE: 20160128
